FAERS Safety Report 5117578-5 (Version None)
Quarter: 2006Q3

REPORT INFORMATION
  Report Type: 
  Country: None (occurrence: None)
  Receive Date: 20060926
  Receipt Date: 20060905
  Transmission Date: 20061208
  Serious: Yes (Disabling)
  Sender: FDA-Public Use
  Company Number: SE200609003342

PATIENT
  Age: 16 Year
  Sex: Male

DRUGS (1)
  1. SOMATROPIN (SOMATROPIN UNKNOWN MANUFACTURER) UNKNOWN [Suspect]
     Indication: CHONDRODYSTROPHY
     Dosage: 0.1 UG/KG, DAILY (1/D)

REACTIONS (3)
  - DYSSTASIA [None]
  - HYPOTONIA [None]
  - PARAPLEGIA [None]
